FAERS Safety Report 5915005-9 (Version None)
Quarter: 2008Q4

REPORT INFORMATION
  Report Type: 
  Country: None (occurrence: None)
  Receive Date: 20081008
  Receipt Date: 20081003
  Transmission Date: 20090506
  Serious: Yes (Other)
  Sender: FDA-Public Use
  Company Number: 2008GR_BP0525

PATIENT
  Age: 61 Year
  Sex: Male

DRUGS (6)
  1. TERBINAFINE HCL [Suspect]
     Indication: ONYCHOMYCOSIS
     Dosage: 250 MG (250 MG, 1 IN 1 D) ORAL
     Route: 048
     Dates: start: 20080620, end: 20080718
  2. BENDROFLUMETHIAZIDE (BENDROFLUAZIDE) [Concomitant]
  3. LISINOPRIL [Concomitant]
  4. SIMVASTATIN [Concomitant]
  5. SOTALOL HYDROCHLORIDE (SOTALOL) [Concomitant]
  6. WARFARIN SODIUM [Concomitant]

REACTIONS (2)
  - JOINT STIFFNESS [None]
  - JOINT SWELLING [None]
